FAERS Safety Report 6817822-X (Version None)
Quarter: 2010Q3

REPORT INFORMATION
  Report Type: 
  Country: None (occurrence: None)
  Receive Date: 20100706
  Receipt Date: 20100624
  Transmission Date: 20110219
  Serious: Yes (Hospitalization)
  Sender: FDA-Public Use
  Company Number: JP-MERCK-1006USA04426

PATIENT
  Age: 82 Year
  Sex: Female

DRUGS (4)
  1. HYZAAR [Suspect]
     Indication: HYPERTENSION
     Route: 048
     Dates: start: 20100617, end: 20100623
  2. AMLODIPINE BESYLATE [Concomitant]
     Indication: HYPERTENSION
     Route: 048
     Dates: start: 20100301
  3. CYCLOSERINE [Concomitant]
     Route: 048
     Dates: start: 20100301
  4. JUVELA [Concomitant]
     Route: 048
     Dates: start: 20100301

REACTIONS (1)
  - VENTRICULAR EXTRASYSTOLES [None]
